FAERS Safety Report 9868948 (Version 2)
Quarter: 2014Q1

REPORT INFORMATION
  Report Type: Report from Study
  Country: US (occurrence: US)
  Receive Date: 20140205
  Receipt Date: 20140212
  Transmission Date: 20141002
  Serious: Yes (Life-Threatening, Hospitalization)
  Sender: FDA-Public Use
  Company Number: US-ROCHE-1342297

PATIENT
  Sex: Male

DRUGS (2)
  1. LUCENTIS [Suspect]
     Indication: DIABETIC RETINAL OEDEMA
     Dosage: INJECTIONS BOTH EYES
     Route: 050
     Dates: start: 20131230, end: 20131230
  2. INSULIN [Concomitant]
     Indication: DIABETES MELLITUS

REACTIONS (5)
  - Cardiac discomfort [Unknown]
  - Diabetes mellitus [Unknown]
  - Fluid retention [Unknown]
  - Renal failure [Unknown]
  - Cardiac failure congestive [Unknown]
